FAERS Safety Report 23048370 (Version 1)
Quarter: 2023Q4

REPORT INFORMATION
  Report Type: Spontaneous
  Country: CN (occurrence: CN)
  Receive Date: 20231010
  Receipt Date: 20231010
  Transmission Date: 20240110
  Serious: Yes (Other)
  Sender: FDA-Public Use
  Company Number: None

PATIENT
  Age: 40 Year
  Sex: Female
  Weight: 57 kg

DRUGS (2)
  1. OLANZAPINE [Suspect]
     Active Substance: OLANZAPINE
     Indication: Acute psychosis
     Dosage: 10MG,BID
     Route: 048
     Dates: start: 20230918, end: 20230926
  2. OLANZAPINE [Suspect]
     Active Substance: OLANZAPINE
     Indication: Acute psychosis
     Dosage: 15MG,QD
     Route: 048
     Dates: start: 20230913, end: 20230918

REACTIONS (2)
  - Hepatic function abnormal [Recovering/Resolving]
  - Type 2 diabetes mellitus [Recovering/Resolving]

NARRATIVE: CASE EVENT DATE: 20230926
